FAERS Safety Report 8166264-6 (Version None)
Quarter: 2012Q1

REPORT INFORMATION
  Report Type: 
  Country: None (occurrence: None)
  Receive Date: 20120227
  Receipt Date: 20110713
  Transmission Date: 20120608
  Serious: No
  Sender: FDA-Public Use
  Company Number: US-MYLANLABS-2011S1010594

PATIENT
  Age: 2 Decade
  Sex: Female
  Weight: 47.63 kg

DRUGS (2)
  1. AMNESTEEM [Suspect]
     Indication: ACNE CYSTIC
     Dates: start: 20110301, end: 20110401
  2. AMNESTEEM [Suspect]
     Dates: start: 20110501

REACTIONS (1)
  - BLOOD BILIRUBIN UNCONJUGATED INCREASED [None]
